FAERS Safety Report 24230828 (Version 1)
Quarter: 2024Q3

REPORT INFORMATION
  Report Type: Spontaneous
  Country: CA (occurrence: CA)
  Receive Date: 20240821
  Receipt Date: 20240821
  Transmission Date: 20241016
  Serious: Yes (Other)
  Sender: AUROBINDO
  Company Number: CA-AUROBINDO-AUR-APL-2024-041332

PATIENT
  Age: 70 Year
  Sex: Male

DRUGS (4)
  1. IRBESARTAN [Interacting]
     Active Substance: IRBESARTAN
     Indication: Blood pressure increased
     Dosage: 150 MILLIGRAM, ONCE A DAY
     Route: 065
  2. CANNABIS SATIVA SUBSP. INDICA TOP [Interacting]
     Active Substance: CANNABIS SATIVA SUBSP. INDICA TOP
     Indication: Pain management
     Dosage: 300 MILLIGRAM, 1 EVERY 4 HOURS
     Route: 048
  3. CANNABIS SATIVA SUBSP. INDICA TOP [Interacting]
     Active Substance: CANNABIS SATIVA SUBSP. INDICA TOP
     Dosage: 3 GRAM, ONCE A DAY
  4. TYLENOL [Concomitant]
     Active Substance: ACETAMINOPHEN
     Indication: Product used for unknown indication
     Dosage: UNK
     Route: 065

REACTIONS (8)
  - Pain [Recovered/Resolved]
  - Cardiac discomfort [Unknown]
  - Discomfort [Recovered/Resolved]
  - Fear [Recovered/Resolved]
  - Near death experience [Recovered/Resolved]
  - Nervousness [Recovered/Resolved]
  - Tension [Recovered/Resolved]
  - Drug interaction [Recovered/Resolved]
